FAERS Safety Report 10373795 (Version 1)
Quarter: 2014Q1

REPORT INFORMATION
  Report Type: Spontaneous
  Country: US (occurrence: None)
  Receive Date: 20140306
  Receipt Date: 20140306
  Transmission Date: 20141002
  Serious: Yes (Life-Threatening, Other)
  Sender: FDA-Public Use
  Company Number: 163-21880-13084242

PATIENT
  Age: 60 Year
  Sex: Male

DRUGS (7)
  1. REVLIMID [Suspect]
     Indication: PLASMA CELL MYELOMA
     Dosage: 15 MG, 21 IN 21 D, PO
     Route: 048
     Dates: start: 20110126
  2. DECADRON (DEXAMETHASONE) (TABLETS) [Concomitant]
  3. GABAPENTIN [Concomitant]
  4. ACYCLOVIR (ACICLOVIR) (CAPSULES) [Concomitant]
  5. ZANTAC (RANITIDINE HYDROCHLORIDE) [Concomitant]
  6. CLARITIN (LORATADINE) (TABLETS) [Concomitant]
  7. CALCIUM [Concomitant]

REACTIONS (2)
  - Deep vein thrombosis [None]
  - Pancytopenia [None]
